FAERS Safety Report 6515792-5 (Version None)
Quarter: 2009Q4

REPORT INFORMATION
  Report Type: 
  Country: None (occurrence: None)
  Receive Date: 20091223
  Receipt Date: 20091214
  Transmission Date: 20100525
  Serious: Yes (Hospitalization)
  Sender: FDA-Public Use
  Company Number: PHHO2009FR15526

PATIENT
  Sex: Female
  Weight: 46 kg

DRUGS (7)
  1. MYCOPHENOLIC ACID [Suspect]
     Indication: RENAL TRANSPLANT
     Dosage: 720 MG, QD
     Route: 048
     Dates: start: 20091123
  2. NEORAL [Suspect]
     Indication: RENAL TRANSPLANT
     Dosage: 200 MG, QD
     Route: 048
     Dates: start: 20091123
  3. XANAX [Concomitant]
     Indication: ANXIETY
  4. KAYEXALATE [Concomitant]
     Indication: HYPERKALAEMIA
  5. NEXIUM [Concomitant]
     Indication: GASTROOESOPHAGEAL REFLUX DISEASE
  6. TRIATEC [Concomitant]
     Indication: HYPERTENSION
  7. SOLUPRED [Concomitant]
     Indication: TRANSPLANT REJECTION

REACTIONS (8)
  - BACK PAIN [None]
  - C-REACTIVE PROTEIN INCREASED [None]
  - CHEST PAIN [None]
  - HAEMATURIA [None]
  - HEADACHE [None]
  - HYPERTHERMIA [None]
  - LEUKOCYTURIA [None]
  - NECK PAIN [None]
